FAERS Safety Report 16314275 (Version 2)
Quarter: 2019Q2

REPORT INFORMATION
  Report Type: Report from Study
  Country: US (occurrence: US)
  Receive Date: 20190515
  Receipt Date: 20190530
  Transmission Date: 20190711
  Serious: Yes (Death)
  Sender: FDA-Public Use
  Company Number: US-TAIHO ONCOLOGY  INC-EU-2019-01563

PATIENT
  Sex: Female
  Weight: 35.41 kg

DRUGS (16)
  1. ENOXAPARIN [Concomitant]
     Active Substance: ENOXAPARIN
     Dosage: 40/0.4ML
     Dates: start: 20190315
  2. OCTREOTIDE. [Concomitant]
     Active Substance: OCTREOTIDE
     Dates: start: 20190404
  3. PANTOPRAZOLE [Concomitant]
     Active Substance: PANTOPRAZOLE
     Dates: start: 20181214
  4. PAROXETINE. [Concomitant]
     Active Substance: PAROXETINE
     Dates: start: 20190319
  5. ATIVAN [Concomitant]
     Active Substance: LORAZEPAM
     Dates: start: 20190416
  6. PROTONIX [Concomitant]
     Active Substance: PANTOPRAZOLE SODIUM
     Dates: start: 20190416
  7. LONSURF [Suspect]
     Active Substance: TIPIRACIL HYDROCHLORIDE\TRIFLURIDINE
     Indication: RECTAL CANCER
     Dosage: CURRENT CYCLE UNKNOWN
     Route: 048
     Dates: start: 20190417, end: 201905
  8. LONSURF [Suspect]
     Active Substance: TIPIRACIL HYDROCHLORIDE\TRIFLURIDINE
     Indication: GASTRIC CANCER
  9. CYANOCOBALAMIN. [Concomitant]
     Active Substance: CYANOCOBALAMIN
     Dates: start: 20190319
  10. PROCHLORPERAZINE. [Concomitant]
     Active Substance: PROCHLORPERAZINE
     Dates: start: 20190302
  11. LOVENOX [Concomitant]
     Active Substance: ENOXAPARIN SODIUM
     Dosage: 30/0.3ML
     Dates: start: 20190416
  12. DRONABINOL. [Concomitant]
     Active Substance: DRONABINOL
     Dates: start: 20190314
  13. TRANSDERM-SC DIS [Concomitant]
     Dosage: TRANSDERMAL
     Dates: start: 20190426
  14. VITAMIN D [Concomitant]
     Active Substance: VITAMIN D NOS
     Dates: start: 20190319
  15. LORAZEPAM. [Concomitant]
     Active Substance: LORAZEPAM
     Dates: start: 20190326
  16. ZOFRAN [Concomitant]
     Active Substance: ONDANSETRON HYDROCHLORIDE
     Dates: start: 20190416

REACTIONS (1)
  - Disease progression [Fatal]
